FAERS Safety Report 9717070 (Version 1)
Quarter: 2013Q4

REPORT INFORMATION
  Report Type: Spontaneous
  Country: US (occurrence: US)
  Receive Date: 20131127
  Receipt Date: 20131127
  Transmission Date: 20140711
  Serious: No
  Sender: FDA-Public Use
  Company Number: US-GILEAD-2009-0020769

PATIENT
  Sex: Female
  Weight: 65.77 kg

DRUGS (11)
  1. LETAIRIS [Suspect]
     Indication: PULMONARY ARTERIAL HYPERTENSION
     Route: 048
  2. VENTAVIS [Concomitant]
  3. REVATIO [Concomitant]
  4. OXYGEN [Concomitant]
  5. COUMADIN [Concomitant]
  6. CARTIA XT [Concomitant]
  7. LASIX [Concomitant]
  8. LANOXIN [Concomitant]
  9. CALTRATE 600 W VIT D [Concomitant]
  10. POTASSIUM CHLORIDE [Concomitant]
  11. CENTRUM SILVER [Concomitant]

REACTIONS (1)
  - Epistaxis [Unknown]
